FAERS Safety Report 10145343 (Version 1)
Quarter: 2014Q2

REPORT INFORMATION
  Report Type: Spontaneous
  Country: US (occurrence: US)
  Receive Date: 20140501
  Receipt Date: 20140501
  Transmission Date: 20141212
  Serious: No
  Sender: FDA-Public Use
  Company Number: US-BIOGENIDEC-2014BI037715

PATIENT
  Sex: Female

DRUGS (1)
  1. TECFIDERA [Suspect]
     Indication: PRODUCT USED FOR UNKNOWN INDICATION

REACTIONS (7)
  - Depression [Unknown]
  - Dizziness [Unknown]
  - Headache [Unknown]
  - Confusional state [Unknown]
  - Asthenia [Unknown]
  - Rash pruritic [Unknown]
  - Nausea [Unknown]
